FAERS Safety Report 12590131 (Version 2)
Quarter: 2016Q3

REPORT INFORMATION
  Report Type: Spontaneous
  Country: US (occurrence: US)
  Receive Date: 20160725
  Receipt Date: 20160805
  Transmission Date: 20161109
  Serious: No
  Sender: FDA-Public Use
  Company Number: US-GLAXOSMITHKLINE-US2016097745

PATIENT

DRUGS (1)
  1. LAMISIL AT ANTIFUNGAL [Suspect]
     Active Substance: TERBINAFINE
     Indication: PRODUCT USED FOR UNKNOWN INDICATION
     Dosage: UNK UNK, U
     Route: 061

REACTIONS (2)
  - Product quality issue [Unknown]
  - Expired product administered [Unknown]
